FAERS Safety Report 22367655 (Version 5)
Quarter: 2024Q3

REPORT INFORMATION
  Report Type: Spontaneous
  Country: US (occurrence: US)
  Receive Date: 20230525
  Receipt Date: 20240912
  Transmission Date: 20241017
  Serious: No
  Sender: PFIZER
  Company Number: US-PFIZER INC-PV202300091634

PATIENT
  Age: 72 Year
  Sex: Female

DRUGS (1)
  1. ESTRING [Suspect]
     Active Substance: ESTRADIOL
     Dosage: 1 EACH VAGINALLY ONCE FOR 1 DOSE FOLLOW PACKAGE DIRECTIONS
     Route: 067

REACTIONS (1)
  - Urinary incontinence [Unknown]
